FAERS Safety Report 5850403-3 (Version None)
Quarter: 2008Q3

REPORT INFORMATION
  Report Type: 
  Country: None (occurrence: None)
  Receive Date: 20080818
  Receipt Date: 20080807
  Transmission Date: 20090109
  Serious: Yes (Hospitalization, Other)
  Sender: FDA-Public Use
  Company Number: 2008-01613

PATIENT
  Age: 67 Year
  Sex: Male
  Weight: 94.8 kg

DRUGS (24)
  1. VELCADE [Suspect]
     Indication: MULTIPLE MYELOMA
     Dosage: 1 MG/M2; 2MG/M2
     Dates: end: 20080320
  2. VELCADE [Suspect]
     Indication: MULTIPLE MYELOMA
     Dosage: 1 MG/M2; 2MG/M2
     Dates: start: 20060503
  3. DEXAMETHASONE TAB [Suspect]
     Indication: MULTIPLE MYELOMA
     Dosage: 40 MG, ORAL; 12 MG, ORAL
     Route: 048
     Dates: end: 20080320
  4. DEXAMETHASONE TAB [Suspect]
     Indication: MULTIPLE MYELOMA
     Dosage: 40 MG, ORAL; 12 MG, ORAL
     Route: 048
     Dates: start: 20060503
  5. THALIDOMIDE [Suspect]
     Indication: MULTIPLE MYELOMA
     Dosage: 200 MG, ORAL; 50 MG, ORAL
     Route: 048
     Dates: end: 20080403
  6. THALIDOMIDE [Suspect]
     Indication: MULTIPLE MYELOMA
     Dosage: 200 MG, ORAL; 50 MG, ORAL
     Route: 048
     Dates: start: 20060503
  7. MELPHALAN(MELPHALAN) VIAL [Suspect]
     Indication: MULTIPLE MYELOMA
     Dosage: 200 MG/M2, INTRAVENOUS; 140 MG/M2, INTRAVENOUS
     Route: 042
     Dates: start: 20060723, end: 20060723
  8. CISPLATIN [Suspect]
     Indication: MULTIPLE MYELOMA
     Dosage: 10 MG/M2, INTRAVENOUS; 7.5 MG/M2, INTRAVENOUS
     Route: 042
     Dates: end: 20070526
  9. CISPLATIN [Suspect]
     Indication: MULTIPLE MYELOMA
     Dosage: 10 MG/M2, INTRAVENOUS; 7.5 MG/M2, INTRAVENOUS
     Route: 042
     Dates: start: 20060503
  10. DOXORUBICIN HCL [Suspect]
     Indication: MULTIPLE MYELOMA
     Dosage: 10 MG/M2, INTRAVENOUS; 7.5 MG/M2, INTRAVENOUS
     Route: 042
     Dates: end: 20070526
  11. DOXORUBICIN HCL [Suspect]
     Indication: MULTIPLE MYELOMA
     Dosage: 10 MG/M2, INTRAVENOUS; 7.5 MG/M2, INTRAVENOUS
     Route: 042
     Dates: start: 20060503
  12. CYCLOPHOSPHAMIDE [Suspect]
     Indication: MULTIPLE MYELOMA
     Dosage: 400 MG/M2, INTRAVENOUS; 300MG/M2, INTRAVENOUS
     Route: 042
     Dates: end: 20070526
  13. CYCLOPHOSPHAMIDE [Suspect]
     Indication: MULTIPLE MYELOMA
     Dosage: 400 MG/M2, INTRAVENOUS; 300MG/M2, INTRAVENOUS
     Route: 042
     Dates: start: 20060503
  14. ETOPOSIDE [Suspect]
     Indication: MULTIPLE MYELOMA
     Dosage: 40 MG/M2, INTRAVENOUS; 30 MG/M2, INTRAVENOUS
     Route: 042
     Dates: end: 20070526
  15. ETOPOSIDE [Suspect]
     Indication: MULTIPLE MYELOMA
     Dosage: 40 MG/M2, INTRAVENOUS; 30 MG/M2, INTRAVENOUS
     Route: 042
     Dates: start: 20060503
  16. LEVOTHYROXINE SODIUM [Concomitant]
  17. VYTORIN ACYCLOVIR (ACICLOVIR) [Concomitant]
  18. ASPIRIN [Concomitant]
  19. GLIPIZIDE [Concomitant]
  20. LYRICA [Concomitant]
  21. METFORMIN HCL [Concomitant]
  22. MULTIVITAMIN [Concomitant]
  23. TOPROL-XL [Concomitant]
  24. ACYCLOVIR [Concomitant]

REACTIONS (17)
  - ABDOMINAL ABSCESS [None]
  - BLOOD CULTURE POSITIVE [None]
  - COLONIC OBSTRUCTION [None]
  - DIVERTICULAR PERFORATION [None]
  - DIVERTICULITIS [None]
  - DYSPHAGIA [None]
  - DYSPNOEA [None]
  - ENTEROCOCCAL INFECTION [None]
  - FOOD INTOLERANCE [None]
  - HYPOTENSION [None]
  - INTESTINAL ISCHAEMIA [None]
  - PYREXIA [None]
  - SEROMA [None]
  - URINE OUTPUT DECREASED [None]
  - WOUND INFECTION [None]
  - WOUND INFECTION FUNGAL [None]
  - WOUND INFECTION PSEUDOMONAS [None]
